FAERS Safety Report 19412659 (Version 1)
Quarter: 2021Q2

REPORT INFORMATION
  Report Type: Report from Study
  Country: IT (occurrence: IT)
  Receive Date: 20210614
  Receipt Date: 20210614
  Transmission Date: 20210717
  Serious: Yes (Other)
  Sender: FDA-Public Use
  Company Number: IT-ACCORD-228078

PATIENT
  Age: 80 Year
  Sex: Female

DRUGS (5)
  1. OLPREZIDE [Suspect]
     Active Substance: HYDROCHLOROTHIAZIDE\OLMESARTAN MEDOXOMIL
     Indication: HYPERTENSION
     Route: 048
     Dates: start: 20200101, end: 20210226
  2. ELIQUIS [Concomitant]
     Active Substance: APIXABAN
     Route: 048
  3. ALMARYTM [Concomitant]
     Active Substance: FLECAINIDE ACETATE
     Route: 048
  4. SLOWMET [Concomitant]
     Active Substance: METFORMIN HYDROCHLORIDE
     Route: 048
  5. RAMIPRIL. [Suspect]
     Active Substance: RAMIPRIL
     Indication: HYPERTENSION
     Route: 048
     Dates: start: 20200101, end: 20210226

REACTIONS (2)
  - Hypertensive crisis [Recovering/Resolving]
  - Drug ineffective [Unknown]

NARRATIVE: CASE EVENT DATE: 20210226
